FAERS Safety Report 15839826 (Version 1)
Quarter: 2019Q1

REPORT INFORMATION
  Report Type: Spontaneous
  Country: AU (occurrence: AU)
  Receive Date: 20190117
  Receipt Date: 20190117
  Transmission Date: 20190417
  Serious: Yes (Other)
  Sender: FDA-Public Use
  Company Number: AU-TEVA-2019-AU-997336

PATIENT
  Age: 59 Year
  Sex: Male

DRUGS (2)
  1. LEVOFLOXACIN. [Suspect]
     Active Substance: LEVOFLOXACIN
     Indication: BACTERIAL INFECTION
     Route: 048
     Dates: start: 2015
  2. FISH-OIL [Concomitant]
     Route: 065

REACTIONS (2)
  - Tendon disorder [Recovering/Resolving]
  - Extremity contracture [Recovering/Resolving]

NARRATIVE: CASE EVENT DATE: 2015
